FAERS Safety Report 7102469-0 (Version None)
Quarter: 2010Q4

REPORT INFORMATION
  Report Type: 
  Country: None (occurrence: None)
  Receive Date: 20101115
  Receipt Date: 20101104
  Transmission Date: 20110411
  Serious: Yes (Death)
  Sender: FDA-Public Use
  Company Number: CA-ROCHE-739349

PATIENT
  Sex: Male
  Weight: 181 kg

DRUGS (3)
  1. BEVACIZUMAB [Suspect]
     Dosage: FORM: INFUSION
     Route: 042
     Dates: start: 20100101, end: 20100904
  2. TYLENOL W/ CODEINE NO. 3 [Concomitant]
  3. LACTULOSE [Concomitant]

REACTIONS (1)
  - DEATH [None]
